FAERS Safety Report 15551217 (Version 3)
Quarter: 2018Q4

REPORT INFORMATION
  Report Type: Spontaneous
  Country: US (occurrence: US)
  Receive Date: 20181025
  Receipt Date: 20181201
  Transmission Date: 20190205
  Serious: No
  Sender: FDA-Public Use
  Company Number: US-PFIZER INC-2017395416

PATIENT
  Age: 57 Year
  Sex: Female
  Weight: 81.63 kg

DRUGS (2)
  1. RELPAX [Suspect]
     Active Substance: ELETRIPTAN HYDROBROMIDE
     Indication: MIGRAINE
     Dosage: 40 MG, UNK
  2. CELEBREX [Concomitant]
     Active Substance: CELECOXIB
     Indication: PAIN IN EXTREMITY
     Dosage: 200 MG, 1X/DAY

REACTIONS (3)
  - Insomnia [Not Recovered/Not Resolved]
  - Visual impairment [Unknown]
  - Head discomfort [Not Recovered/Not Resolved]
